FAERS Safety Report 9230842 (Version 1)
Quarter: 2013Q2

REPORT INFORMATION
  Report Type: Spontaneous
  Country: MX (occurrence: MX)
  Receive Date: 20130415
  Receipt Date: 20130415
  Transmission Date: 20140414
  Serious: Yes (Disabling)
  Sender: FDA-Public Use
  Company Number: PHHY2013MX034946

PATIENT
  Age: 79 Year
  Sex: Male

DRUGS (6)
  1. STALEVO [Suspect]
     Indication: PARKINSON^S DISEASE
     Dosage: 1 DF, TID
     Route: 048
     Dates: start: 20130101
  2. AKATINOL [Concomitant]
     Indication: CEREBRAL HYPOPERFUSION
     Dosage: 20 MG, UNK
  3. OLANZAPINE [Concomitant]
     Indication: CEREBRAL HYPOPERFUSION
     Dosage: UNK UKN, UNK
  4. PREGABALIN [Concomitant]
     Indication: PAIN
     Dosage: 75 UNK, UNK
  5. SIL-NORBORAL [Concomitant]
     Indication: DIABETES MELLITUS
     Dosage: UNK UKN, UNK
  6. LOSARTAN [Concomitant]
     Indication: HYPERTENSION
     Dosage: 2 UNK, DAILY

REACTIONS (1)
  - Abasia [Not Recovered/Not Resolved]
